FAERS Safety Report 5026179-9 (Version None)
Quarter: 2006Q2

REPORT INFORMATION
  Report Type: 
  Country: None (occurrence: None)
  Receive Date: 20060608
  Receipt Date: 20060601
  Transmission Date: 20061013
  Serious: Yes (Other)
  Sender: FDA-Public Use
  Company Number: US200605003904

PATIENT
  Age: 73 Year
  Sex: Male

DRUGS (4)
  1. CYMBALTA [Suspect]
     Indication: DIABETIC NEUROPATHY
     Dosage: 120 MG
     Dates: start: 20051101
  2. PROZAC [Concomitant]
  3. NEUROTON (CITICOLINE SODIUM) [Concomitant]
  4. BETA BLOCKING AGENTS AND OTHER ANTIHYPERTENSI [Concomitant]

REACTIONS (3)
  - CIRRHOSIS ALCOHOLIC [None]
  - ENCEPHALOPATHY [None]
  - HEPATIC ENZYME INCREASED [None]
